FAERS Safety Report 19398889 (Version 1)
Quarter: 2021Q2

REPORT INFORMATION
  Report Type: Spontaneous
  Country: US (occurrence: US)
  Receive Date: 20210610
  Receipt Date: 20210610
  Transmission Date: 20210717
  Serious: No
  Sender: FDA-Public Use
  Company Number: None

PATIENT
  Age: 25 Year
  Sex: Female
  Weight: 81 kg

DRUGS (1)
  1. ZAFEMY [Suspect]
     Active Substance: ETHINYL ESTRADIOL\NORELGESTROMIN
     Indication: CONTRACEPTION
     Dosage: ?          OTHER FREQUENCY:ONE PER WEEK;?
     Route: 061
     Dates: start: 20210524, end: 20210608

REACTIONS (8)
  - Mood swings [None]
  - Complication associated with device [None]
  - Product adhesion issue [None]
  - Pain in extremity [None]
  - Migraine [None]
  - Fatigue [None]
  - Intermenstrual bleeding [None]
  - Abdominal distension [None]

NARRATIVE: CASE EVENT DATE: 20210531
